FAERS Safety Report 14919624 (Version 1)
Quarter: 2018Q2

REPORT INFORMATION
  Report Type: Spontaneous
  Country: SE (occurrence: SE)
  Receive Date: 20180521
  Receipt Date: 20180521
  Transmission Date: 20180711
  Serious: Yes (Hospitalization)
  Sender: FDA-Public Use
  Company Number: SE-PFIZER INC-2018201835

PATIENT
  Age: 88 Year
  Sex: Female

DRUGS (13)
  1. GLYTRIN /00003201/ [Concomitant]
     Dosage: 1 DF, AS NEEDED
  2. SPIRONOLACTONE. [Suspect]
     Active Substance: SPIRONOLACTONE
     Dosage: 25 MG, DAILY
     Dates: end: 201803
  3. ENALAPRIL [Suspect]
     Active Substance: ENALAPRIL
     Dosage: 20 MG, DAILY
     Dates: end: 201803
  4. IPREN [Suspect]
     Active Substance: IBUPROFEN
     Dosage: UNK
     Dates: start: 20180319
  5. FURIX [Concomitant]
     Active Substance: FUROSEMIDE
     Dosage: UNK
  6. IMDUR [Concomitant]
     Active Substance: ISOSORBIDE MONONITRATE
     Dosage: UNK
  7. TROMBYL [Concomitant]
     Active Substance: ASPIRIN
     Dosage: UNK
  8. DESLORATADIN [Concomitant]
     Active Substance: DESLORATADINE
     Dosage: 1 DF, AS NEEDED
  9. OMEPRAZOL [Concomitant]
     Active Substance: OMEPRAZOLE
  10. KALEORID [Suspect]
     Active Substance: POTASSIUM CHLORIDE
     Dosage: 1500 MG, DAILY
     Dates: end: 201803
  11. OXASCAND [Concomitant]
     Active Substance: OXAZEPAM
     Dosage: 1 DF, AS NEEDED
  12. ALVEDON FORTE [Concomitant]
     Dosage: 1 DF, AS NEEDED
  13. ACETYLCYSTEIN [Concomitant]
     Active Substance: ACETYLCYSTEINE
     Dosage: 1 DF, AS NEEDED

REACTIONS (2)
  - Hyperkalaemia [Recovered/Resolved]
  - Angioedema [Recovered/Resolved]

NARRATIVE: CASE EVENT DATE: 20180319
